FAERS Safety Report 9362778 (Version 1)
Quarter: 2013Q2

REPORT INFORMATION
  Report Type: Spontaneous
  Country: US (occurrence: US)
  Receive Date: 20130624
  Receipt Date: 20130624
  Transmission Date: 20140414
  Serious: Yes (Other)
  Sender: FDA-Public Use
  Company Number: US-PFIZER INC-2013182268

PATIENT
  Age: 53 Year
  Sex: Female

DRUGS (3)
  1. LEVOFLOXACIN [Suspect]
     Indication: PNEUMONIA LEGIONELLA
     Dosage: UNK
  2. RIFAMPIN [Suspect]
     Indication: PNEUMONIA LEGIONELLA
     Dosage: UNK
  3. PIPERACILLIN/TAZOBACTAM [Suspect]
     Indication: PNEUMONIA LEGIONELLA
     Dosage: UNK

REACTIONS (2)
  - Acute respiratory distress syndrome [Recovering/Resolving]
  - Drug ineffective [Recovering/Resolving]
